FAERS Safety Report 9069147 (Version 1)
Quarter: 2013Q1

REPORT INFORMATION
  Report Type: Spontaneous
  Country: FR (occurrence: FR)
  Receive Date: 20130215
  Receipt Date: 20130215
  Transmission Date: 20140127
  Serious: Yes (Hospitalization)
  Sender: FDA-Public Use
  Company Number: FR-PFIZER INC-2013049146

PATIENT
  Age: 83 Year
  Sex: Female

DRUGS (8)
  1. EUPANTOL [Suspect]
     Dosage: 20 MG, DAILY
     Route: 048
  2. PERINDOPRIL [Suspect]
     Dosage: 2.5 MG, UNK
     Route: 048
     Dates: end: 20121031
  3. PERINDOPRIL [Suspect]
     Dosage: 2.5 MG, UNK
     Route: 048
     Dates: start: 20121103
  4. ACETYLSALICYLATE LYSINE [Suspect]
     Dosage: 75 MG, UNK
     Route: 048
  5. VERAPAMIL [Suspect]
     Dosage: 40 MG, UNK
  6. PARACETAMOL [Concomitant]
     Dosage: UNK
  7. PHLOROGLUCINOL [Concomitant]
     Dosage: UNK
  8. MORPHINE SULFATE [Concomitant]
     Dosage: 5 MG, UNK
     Dates: start: 20121031

REACTIONS (8)
  - Hyperkalaemia [Recovered/Resolved]
  - Hypotension [Recovered/Resolved]
  - Pain [Recovered/Resolved]
  - Renal failure [Recovered/Resolved]
  - Hyponatraemia [Recovered/Resolved]
  - Nausea [Recovered/Resolved]
  - Vomiting [Recovered/Resolved]
  - Asthenia [Recovered/Resolved]
